FAERS Safety Report 22110646 (Version 1)
Quarter: 2023Q1

REPORT INFORMATION
  Report Type: Spontaneous
  Country: CA (occurrence: CA)
  Receive Date: 20230317
  Receipt Date: 20230317
  Transmission Date: 20230417
  Serious: Yes (Other)
  Sender: FDA-Public Use
  Company Number: CA-TEVA-2023-CA-2865670

PATIENT
  Age: 58 Year
  Sex: Female

DRUGS (10)
  1. LEVETIRACETAM [Suspect]
     Active Substance: LEVETIRACETAM
     Indication: Status epilepticus
     Route: 065
  2. METHYLPREDNISOLONE [Suspect]
     Active Substance: METHYLPREDNISOLONE
     Indication: Status epilepticus
     Route: 042
  3. PROPOFOL [Suspect]
     Active Substance: PROPOFOL
     Indication: Status epilepticus
     Route: 065
  4. KETAMINE [Suspect]
     Active Substance: KETAMINE
     Indication: Status epilepticus
     Route: 065
  5. MIDAZOLAM [Suspect]
     Active Substance: MIDAZOLAM
     Indication: Status epilepticus
     Route: 065
  6. PHENOBARBITAL [Suspect]
     Active Substance: PHENOBARBITAL
     Indication: Status epilepticus
     Dosage: 300 MILLIGRAM DAILY;
     Route: 065
  7. PHENYTOIN [Suspect]
     Active Substance: PHENYTOIN
     Indication: Status epilepticus
     Route: 065
  8. PHENYTOIN [Suspect]
     Active Substance: PHENYTOIN
     Indication: Seizure
  9. VALPROIC ACID [Suspect]
     Active Substance: VALPROIC ACID
     Indication: Status epilepticus
     Route: 065
  10. PIPERACILLIN SODIUM\TAZOBACTAM SODIUM [Concomitant]
     Active Substance: PIPERACILLIN SODIUM\TAZOBACTAM SODIUM
     Indication: Appendicitis
     Route: 065

REACTIONS (7)
  - Abdominal distension [Unknown]
  - Hypertrophic cardiomyopathy [Unknown]
  - Intestinal perforation [Unknown]
  - Intra-abdominal pressure increased [Unknown]
  - Necrosis ischaemic [Unknown]
  - Systemic inflammatory response syndrome [Unknown]
  - Vomiting [Unknown]
